FAERS Safety Report 8141809-0 (Version None)
Quarter: 2012Q1

REPORT INFORMATION
  Report Type: 
  Country: None (occurrence: None)
  Receive Date: 20120216
  Receipt Date: 20120207
  Transmission Date: 20120608
  Serious: Yes (Other)
  Sender: FDA-Public Use
  Company Number: US-ELI_LILLY_AND_COMPANY-US201202002261

PATIENT
  Sex: Female

DRUGS (5)
  1. EVISTA [Suspect]
     Indication: OSTEOPOROSIS
     Dosage: 60 MG, QD
     Dates: end: 20111101
  2. ACTONEL [Concomitant]
  3. VITAMIN E [Concomitant]
  4. VITAMIN A [Concomitant]
  5. LISINOPRIL [Concomitant]

REACTIONS (3)
  - FRACTURED COCCYX [None]
  - DRUG INEFFECTIVE [None]
  - PELVIC FRACTURE [None]
